FAERS Safety Report 12215277 (Version 1)
Quarter: 2016Q1

REPORT INFORMATION
  Report Type: Spontaneous
  Country: None (occurrence: US)
  Receive Date: 20160328
  Receipt Date: 20160328
  Transmission Date: 20160526
  Serious: No
  Sender: FDA-Public Use
  Company Number: US-BRECKENRIDGE PHARMACEUTICAL, INC.-1049835

PATIENT
  Age: 62 Year
  Sex: Female
  Weight: 72.73 kg

DRUGS (1)
  1. DULOXETINE. [Suspect]
     Active Substance: DULOXETINE
     Indication: INTERCEPTED MEDICATION ERROR
     Route: 048
     Dates: start: 20160218, end: 20160218

REACTIONS (3)
  - Nausea [Recovered/Resolved]
  - Anxiety [Recovering/Resolving]
  - Disorientation [Recovered/Resolved]

NARRATIVE: CASE EVENT DATE: 20160218
